FAERS Safety Report 21616057 (Version 2)
Quarter: 2022Q4

REPORT INFORMATION
  Report Type: Spontaneous
  Country: US (occurrence: US)
  Receive Date: 20221118
  Receipt Date: 20221214
  Transmission Date: 20230113
  Serious: Yes (Disabling, Other)
  Sender: FDA-Public Use
  Company Number: US-Sprout Pharmaceuticals, Inc.-2022SP000328

PATIENT
  Sex: Female

DRUGS (1)
  1. ADDYI [Suspect]
     Active Substance: FLIBANSERIN
     Indication: Product used for unknown indication
     Dosage: RX # 8425493
     Route: 048
     Dates: start: 202210

REACTIONS (6)
  - Impaired work ability [Unknown]
  - Eye swelling [Unknown]
  - Swelling face [Unknown]
  - Drug hypersensitivity [Unknown]
  - Orbital oedema [Unknown]
  - Rash [Unknown]
